FAERS Safety Report 10340645 (Version 1)
Quarter: 2014Q3

REPORT INFORMATION
  Report Type: Spontaneous
  Country: GB (occurrence: GB)
  Receive Date: 20140724
  Receipt Date: 20140724
  Transmission Date: 20150326
  Serious: Yes (Hospitalization)
  Sender: FDA-Public Use
  Company Number: GB-MYLANLABS-2014S1017020

PATIENT
  Age: 43 Year

DRUGS (4)
  1. FLUOXETINE [Concomitant]
     Active Substance: FLUOXETINE\FLUOXETINE HYDROCHLORIDE
  2. AZATHIOPRINE. [Suspect]
     Active Substance: AZATHIOPRINE
     Dates: start: 20140606
  3. AZATHIOPRINE. [Suspect]
     Active Substance: AZATHIOPRINE
  4. CERAZETTE [Concomitant]
     Active Substance: DESOGESTREL

REACTIONS (1)
  - Gastritis [Unknown]
